FAERS Safety Report 17737056 (Version 1)
Quarter: 2020Q2

REPORT INFORMATION
  Report Type: Report from Study
  Country: NL (occurrence: NL)
  Receive Date: 20200502
  Receipt Date: 20200502
  Transmission Date: 20200714
  Serious: Yes (Other)
  Sender: FDA-Public Use
  Company Number: NL-ACCORD-180560

PATIENT
  Age: 67 Year
  Sex: Female

DRUGS (1)
  1. METHOTREXATE. [Suspect]
     Active Substance: METHOTREXATE
     Indication: RHEUMATOID ARTHRITIS

REACTIONS (1)
  - Osteomalacia [Recovering/Resolving]

NARRATIVE: CASE EVENT DATE: 20150811
